FAERS Safety Report 10742058 (Version 5)
Quarter: 2015Q4

REPORT INFORMATION
  Report Type: Spontaneous
  Country: US (occurrence: US)
  Receive Date: 20150127
  Receipt Date: 20151124
  Transmission Date: 20160304
  Serious: Yes (Other)
  Sender: FDA-Public Use
  Company Number: US-PFIZER INC-2015027920

PATIENT
  Age: 68 Year
  Sex: Female

DRUGS (2)
  1. XELJANZ [Suspect]
     Active Substance: TOFACITINIB CITRATE
     Dosage: 5 MG, DAILY
     Route: 048
     Dates: start: 201407
  2. XELJANZ [Suspect]
     Active Substance: TOFACITINIB CITRATE
     Indication: RHEUMATOID ARTHRITIS
     Dosage: 5 MG, 2X/DAY
     Route: 048
     Dates: start: 20140717

REACTIONS (12)
  - Balance disorder [Unknown]
  - Communication disorder [Unknown]
  - Contusion [Unknown]
  - Speech disorder [Unknown]
  - Hearing impaired [Unknown]
  - Back pain [Unknown]
  - Blood cholesterol increased [Unknown]
  - Vertigo [Unknown]
  - Abdominal pain [Unknown]
  - Weight increased [Unknown]
  - Herpes zoster [Unknown]
  - Gastrointestinal disorder [Unknown]

NARRATIVE: CASE EVENT DATE: 20150119
